FAERS Safety Report 6760943-0 (Version None)
Quarter: 2010Q2

REPORT INFORMATION
  Report Type: 
  Country: None (occurrence: None)
  Receive Date: 20100608
  Receipt Date: 20100601
  Transmission Date: 20101027
  Serious: Yes (Hospitalization)
  Sender: FDA-Public Use
  Company Number: US-SANOFI-AVENTIS-2010SA019015

PATIENT
  Age: 77 Year
  Sex: Male
  Weight: 149.23 kg

DRUGS (2)
  1. LANTUS [Suspect]
     Dosage: DOSE:75 UNIT(S)
     Route: 058
     Dates: start: 20061214
  2. OPTICLICK [Suspect]

REACTIONS (3)
  - ARRHYTHMIA [None]
  - FALL [None]
  - SYNCOPE [None]
